FAERS Safety Report 7946627-1 (Version None)
Quarter: 2011Q4

REPORT INFORMATION
  Report Type: 
  Country: None (occurrence: None)
  Receive Date: 20111129
  Receipt Date: 20111114
  Transmission Date: 20120403
  Serious: Yes (Hospitalization)
  Sender: FDA-Public Use
  Company Number: IT-WATSON-2011-19727

PATIENT
  Age: 41 Year
  Sex: Female

DRUGS (1)
  1. GEMCITABINE [Suspect]
     Indication: LEIOMYOSARCOMA METASTATIC
     Dosage: 1000 MG/M2, DAYS 1, 8, AND 15 EVERY 4 WKS
     Route: 042
     Dates: start: 20080715, end: 20081007

REACTIONS (1)
  - POSTERIOR REVERSIBLE ENCEPHALOPATHY SYNDROME [None]
